FAERS Safety Report 4988352-5 (Version None)
Quarter: 2006Q2

REPORT INFORMATION
  Report Type: 
  Country: None (occurrence: None)
  Receive Date: 20060426
  Receipt Date: 20060414
  Transmission Date: 20061013
  Serious: Yes (Other)
  Sender: FDA-Public Use
  Company Number: 8009185

PATIENT
  Age: 24 Year
  Sex: Female

DRUGS (12)
  1. KEPPRA [Suspect]
     Indication: EPILEPSY
     Dosage: 1500 MG /D PO
     Route: 048
     Dates: start: 20020501, end: 20040801
  2. KEPPRA [Suspect]
     Indication: EPILEPSY
     Dosage: PO
     Route: 048
     Dates: start: 20040801, end: 20040801
  3. KEPPRA [Suspect]
     Indication: EPILEPSY
     Dosage: 1500 MG /D PO
     Route: 048
     Dates: start: 20040801
  4. TEGRETOL [Suspect]
     Indication: EPILEPSY
     Dosage: 600 MG 2/D PO
     Route: 048
     Dates: start: 20000101
  5. FOLIC ACID [Concomitant]
  6. ALLEGRA [Concomitant]
  7. PHENERGAN /00033001/ [Concomitant]
  8. REGLAN /00041901/ [Concomitant]
  9. SCOPOLAMINE PATCH [Concomitant]
  10. PRENATAL VITAMINS [Concomitant]
  11. ZOFRAN [Concomitant]
  12. ACYCLOVIR 5% OINTMENT [Concomitant]

REACTIONS (13)
  - CAESAREAN SECTION [None]
  - COMPLICATION OF PREGNANCY [None]
  - CONVULSION [None]
  - DRUG EXPOSURE DURING PREGNANCY [None]
  - FOETAL MOVEMENTS DECREASED [None]
  - HERPES SIMPLEX [None]
  - LABOUR INDUCTION [None]
  - OEDEMA PERIPHERAL [None]
  - PREGNANCY [None]
  - TACHYCARDIA FOETAL [None]
  - VAGINAL HAEMORRHAGE [None]
  - VOMITING [None]
  - WEIGHT DECREASED [None]
